FAERS Safety Report 5856609-1 (Version None)
Quarter: 2008Q3

REPORT INFORMATION
  Report Type: 
  Country: None (occurrence: None)
  Receive Date: 20080825
  Receipt Date: 20070815
  Transmission Date: 20090109
  Serious: No
  Sender: FDA-Public Use
  Company Number: US-ASTRAZENECA-2003UW09129

PATIENT
  Age: 70 Year
  Sex: Female
  Weight: 79.5 kg

DRUGS (10)
  1. IRESSA [Suspect]
     Indication: NON-SMALL CELL LUNG CANCER
     Route: 048
     Dates: start: 20021001
  2. ACETYL SALICYLIC ACID USP BAT [Interacting]
  3. LAMISIL [Interacting]
  4. PAXIL [Concomitant]
  5. CELEBREX [Concomitant]
  6. NORVASC [Concomitant]
  7. COZAAR [Concomitant]
  8. CELEXA [Concomitant]
  9. PRILOSEC [Concomitant]
  10. ACTONEL [Concomitant]

REACTIONS (11)
  - ACNE [None]
  - ALOPECIA [None]
  - DRY SKIN [None]
  - HAIR GROWTH ABNORMAL [None]
  - NAIL DISORDER [None]
  - ONYCHOMADESIS [None]
  - ONYCHOMYCOSIS [None]
  - PARONYCHIA [None]
  - POTENTIATING DRUG INTERACTION [None]
  - SKIN DISORDER [None]
  - SKIN LACERATION [None]
